FAERS Safety Report 8398984-2 (Version None)
Quarter: 2012Q2

REPORT INFORMATION
  Report Type: 
  Country: None (occurrence: None)
  Receive Date: 20120531
  Receipt Date: 20120525
  Transmission Date: 20120825
  Serious: Yes (Hospitalization)
  Sender: FDA-Public Use
  Company Number: SE-UCBSA-058158

PATIENT
  Age: 34 Year
  Sex: Female

DRUGS (1)
  1. CIMZIA [Suspect]
     Indication: RHEUMATOID ARTHRITIS
     Dosage: 40 ,40 MG
     Dates: start: 20101007, end: 20101018

REACTIONS (3)
  - SWELLING FACE [None]
  - CHEST DISCOMFORT [None]
  - URTICARIA [None]
